FAERS Safety Report 4819564-9 (Version None)
Quarter: 2005Q4

REPORT INFORMATION
  Report Type: 
  Country: None (occurrence: None)
  Receive Date: 20051102
  Receipt Date: 20051031
  Transmission Date: 20060501
  Serious: Yes (Hospitalization)
  Sender: FDA-Public Use
  Company Number: 217105

PATIENT
  Age: 14 Year
  Sex: Male
  Weight: 136.1 kg

DRUGS (1)
  1. XOLAIR [Suspect]
     Indication: ASTHMA
     Dates: start: 20050722

REACTIONS (2)
  - ASTHMA [None]
  - CONDITION AGGRAVATED [None]
